FAERS Safety Report 7547686-0 (Version None)
Quarter: 2011Q2

REPORT INFORMATION
  Report Type: 
  Country: None (occurrence: None)
  Receive Date: 20110614
  Receipt Date: 20110415
  Transmission Date: 20111010
  Serious: No
  Sender: FDA-Public Use
  Company Number: US-BAYER-2011-033771

PATIENT
  Sex: Female

DRUGS (1)
  1. ALEVE (CAPLET) [Suspect]
     Indication: BACK PAIN
     Dosage: 2 DF, QD
     Route: 048

REACTIONS (3)
  - NO ADVERSE EVENT [None]
  - FATIGUE [None]
  - SOMNOLENCE [None]
